FAERS Safety Report 6921725-X (Version None)
Quarter: 2010Q3

REPORT INFORMATION
  Report Type: 
  Country: None (occurrence: None)
  Receive Date: 20100812
  Receipt Date: 20100803
  Transmission Date: 20110219
  Serious: Yes (Death)
  Sender: FDA-Public Use
  Company Number: US-GENZYME-CLOF-1001115

PATIENT
  Sex: Male

DRUGS (1)
  1. CLOLAR [Suspect]
     Indication: MYELODYSPLASTIC SYNDROME
     Dosage: UNK UNK, UNK
     Route: 065
     Dates: start: 20100701, end: 20100701

REACTIONS (2)
  - PANCYTOPENIA [None]
  - SEPSIS [None]
